FAERS Safety Report 25401105 (Version 3)
Quarter: 2025Q3

REPORT INFORMATION
  Report Type: Report from Study
  Country: US (occurrence: US)
  Receive Date: 20250605
  Receipt Date: 20250812
  Transmission Date: 20251020
  Serious: Yes (Other)
  Sender: MALLINCKRODT
  Company Number: US-MALLINCKRODT-MNK202503258

PATIENT
  Sex: Male
  Weight: 186 kg

DRUGS (5)
  1. CORTICOTROPIN [Suspect]
     Active Substance: CORTICOTROPIN
     Indication: Pulmonary sarcoidosis
     Dosage: 80 UNITS
     Route: 058
  2. INSULIN NOS [Concomitant]
     Active Substance: INSULIN NOS
  3. MORPHINE [Concomitant]
     Active Substance: MORPHINE
     Indication: Pain
  4. MORPHINE [Concomitant]
     Active Substance: MORPHINE
     Indication: Back pain
  5. MORPHINE [Concomitant]
     Active Substance: MORPHINE

REACTIONS (8)
  - Respiratory tract infection [Unknown]
  - Colour blindness acquired [Unknown]
  - Oxygen saturation decreased [Unknown]
  - Insomnia [Recovering/Resolving]
  - Joint swelling [Unknown]
  - Hypersensitivity [Unknown]
  - Weight increased [Unknown]
  - Injection site haemorrhage [Unknown]
